FAERS Safety Report 19715603 (Version 1)
Quarter: 2021Q3

REPORT INFORMATION
  Report Type: Report from Study
  Country: NL (occurrence: NL)
  Receive Date: 20210818
  Receipt Date: 20210818
  Transmission Date: 20211014
  Serious: Yes (Hospitalization, Other)
  Sender: FDA-Public Use
  Company Number: NL-BIOVITRUM-2021NL7568

PATIENT
  Weight: 7 kg

DRUGS (7)
  1. AZITROMYCINE [Concomitant]
     Active Substance: AZITHROMYCIN
  2. SYNAGIS [Suspect]
     Active Substance: PALIVIZUMAB
     Route: 030
  3. FUROSEMIDE. [Concomitant]
     Active Substance: FUROSEMIDE
  4. SPIRONOLACTON [Concomitant]
     Active Substance: SPIRONOLACTONE
  5. NEXIUM [Concomitant]
     Active Substance: ESOMEPRAZOLE MAGNESIUM
  6. SYNAGIS [Suspect]
     Active Substance: PALIVIZUMAB
     Indication: PREMATURE BABY
     Route: 030
     Dates: start: 20210713
  7. FORLAX [Concomitant]
     Active Substance: POLYETHYLENE GLYCOL 4000

REACTIONS (1)
  - Respiratory tract infection [Recovered/Resolved]
